FAERS Safety Report 25186427 (Version 2)
Quarter: 2025Q2

REPORT INFORMATION
  Report Type: Spontaneous
  Country: IN (occurrence: IN)
  Receive Date: 20250410
  Receipt Date: 20250416
  Transmission Date: 20250716
  Serious: Yes (Death, Life-Threatening, Hospitalization, Other)
  Sender: SANOFI AVENTIS
  Company Number: IN-MLMSERVICE-20250402-PI464068-00175-1

PATIENT
  Age: 69 Year
  Sex: Female

DRUGS (6)
  1. ENOXAPARIN SODIUM [Suspect]
     Active Substance: ENOXAPARIN SODIUM
     Indication: Acute coronary syndrome
     Dosage: 40 MG, Q12H
     Route: 058
     Dates: start: 2024, end: 2024
  2. HEPARIN [Suspect]
     Active Substance: HEPARIN SODIUM
     Indication: Acute coronary syndrome
     Dosage: 10 IU/KG, QH FOR 24 HRS
     Dates: start: 2024
  3. HYDROXYCHLOROQUINE [Concomitant]
     Active Substance: HYDROXYCHLOROQUINE
     Indication: Immune thrombocytopenia
     Dosage: 200 MG, Q12H
     Dates: start: 2012
  4. PROTAMINE [Concomitant]
     Active Substance: PROTAMINE
     Indication: Heparin neutralisation therapy
  5. IMMUNE GLOBULIN NOS [Concomitant]
     Active Substance: IMMUNE GLOBULIN NOS
     Indication: Platelet count decreased
     Dosage: 0.5 G/KG, QD
     Route: 042
     Dates: start: 202402, end: 2024
  6. HYDROCORTISONE [Concomitant]
     Active Substance: HYDROCORTISONE
     Indication: Platelet count decreased
     Dosage: 50 MG, TID
     Route: 048
     Dates: start: 202402, end: 2024

REACTIONS (6)
  - Heparin-induced thrombocytopenia [Fatal]
  - Haemodynamic instability [Fatal]
  - Graft thrombosis [Fatal]
  - Left ventricular dysfunction [Fatal]
  - Arterial thrombosis [Fatal]
  - Superficial vein thrombosis [Fatal]

NARRATIVE: CASE EVENT DATE: 20240101
